FAERS Safety Report 9199545 (Version 3)
Quarter: 2013Q4

REPORT INFORMATION
  Report Type: Spontaneous
  Country: US (occurrence: US)
  Receive Date: 20130329
  Receipt Date: 20131007
  Transmission Date: 20140711
  Serious: No
  Sender: FDA-Public Use
  Company Number: US-GLAXOSMITHKLINE-A0987102A

PATIENT
  Age: 47 Year
  Sex: Female
  Weight: 95.34 kg

DRUGS (11)
  1. BENLYSTA [Suspect]
     Indication: SYSTEMIC LUPUS ERYTHEMATOSUS
     Dosage: 1090MG CYCLIC
     Route: 042
     Dates: start: 20111221
  2. SYNTHROID [Concomitant]
     Dosage: 88MCG PER DAY
  3. COUMADIN [Concomitant]
     Dosage: 7.5MG PER DAY
  4. DILAUDID [Concomitant]
  5. NORCO [Concomitant]
  6. NORVASC [Concomitant]
     Dosage: 10MG PER DAY
  7. CELLCEPT [Concomitant]
     Dosage: 250MG PER DAY
  8. TRAZODONE [Concomitant]
     Dosage: 50MG PER DAY
  9. VALIUM [Concomitant]
     Dosage: 5MG PER DAY
  10. PROZAC [Concomitant]
  11. PHENERGAN IV [Concomitant]
     Indication: PREMEDICATION

REACTIONS (10)
  - Fatigue [Recovered/Resolved]
  - Nausea [Not Recovered/Not Resolved]
  - Infusion related reaction [Unknown]
  - Pain in extremity [Not Recovered/Not Resolved]
  - Insomnia [Unknown]
  - Night sweats [Not Recovered/Not Resolved]
  - Pain in extremity [Not Recovered/Not Resolved]
  - Arthralgia [Not Recovered/Not Resolved]
  - Somnolence [Unknown]
  - Cartilage injury [Unknown]
